FAERS Safety Report 21034469 (Version 1)
Quarter: 2022Q3

REPORT INFORMATION
  Report Type: Spontaneous
  Country: US (occurrence: None)
  Receive Date: 20220701
  Receipt Date: 20220701
  Transmission Date: 20221027
  Serious: No
  Sender: FDA-Public Use
  Company Number: 2022A226598

PATIENT
  Age: 67 Year

DRUGS (2)
  1. XIGDUO XR [Suspect]
     Active Substance: DAPAGLIFLOZIN PROPANEDIOL\METFORMIN HYDROCHLORIDE
     Indication: Type 2 diabetes mellitus
     Dosage: 5MG/1000MG, TWO TIMES A DAY
     Route: 048
  2. AVODART [Concomitant]
     Active Substance: DUTASTERIDE

REACTIONS (6)
  - Alanine aminotransferase abnormal [Unknown]
  - Contusion [Not Recovered/Not Resolved]
  - Dysuria [Not Recovered/Not Resolved]
  - Blood glucose abnormal [Unknown]
  - Penis disorder [Not Recovered/Not Resolved]
  - Rash [Not Recovered/Not Resolved]

NARRATIVE: CASE EVENT DATE: 20220101
